FAERS Safety Report 20631110 (Version 1)
Quarter: 2022Q1

REPORT INFORMATION
  Report Type: Spontaneous
  Country: US (occurrence: US)
  Receive Date: 20220324
  Receipt Date: 20220324
  Transmission Date: 20220423
  Serious: No
  Sender: FDA-Public Use
  Company Number: US-BAYER-2022A042179

PATIENT
  Age: 32 Year
  Sex: Female

DRUGS (3)
  1. MIRENA [Suspect]
     Active Substance: LEVONORGESTREL
     Indication: Asthma
     Dosage: 20?G/DAY
     Route: 015
     Dates: start: 20150617
  2. MIRENA [Suspect]
     Active Substance: LEVONORGESTREL
     Indication: Eczema
  3. MIRENA [Suspect]
     Active Substance: LEVONORGESTREL
     Indication: Intrauterine contraception

REACTIONS (3)
  - Eye swelling [None]
  - Eye pruritus [None]
  - Adverse event [None]

NARRATIVE: CASE EVENT DATE: 20211201
